FAERS Safety Report 13927645 (Version 2)
Quarter: 2017Q4

REPORT INFORMATION
  Report Type: Spontaneous
  Country: US (occurrence: US)
  Receive Date: 20170901
  Receipt Date: 20171023
  Transmission Date: 20180320
  Serious: No
  Sender: FDA-Public Use
  Company Number: US-PFIZER INC-2017373638

PATIENT
  Age: 65 Year
  Sex: Female

DRUGS (5)
  1. VALIUM [Concomitant]
     Active Substance: DIAZEPAM
     Dosage: 5MG ONCE AT BEDTIME
  2. LYRICA [Suspect]
     Active Substance: PREGABALIN
     Dosage: 150 MG, 2X/DAY (75MG 2 CAPSULES)
     Dates: start: 201708
  3. LYRICA [Suspect]
     Active Substance: PREGABALIN
     Indication: PAIN
     Dosage: 225 MG, 2X/DAY (75MG, 3 CAPSULES)
     Dates: start: 201708, end: 201708
  4. LYRICA [Suspect]
     Active Substance: PREGABALIN
     Indication: NEURALGIA
     Dosage: 150 MG, 2X/DAY (75 MG, 2 CAPSULES)
     Dates: start: 201411
  5. TOPIRAMATE. [Concomitant]
     Active Substance: TOPIRAMATE
     Dosage: 50 MG, 1X/DAY
     Route: 048

REACTIONS (2)
  - Somnolence [Not Recovered/Not Resolved]
  - Drug ineffective [Unknown]

NARRATIVE: CASE EVENT DATE: 201707
